FAERS Safety Report 9205722 (Version 2)
Quarter: 2013Q3

REPORT INFORMATION
  Report Type: Spontaneous
  Country: US (occurrence: None)
  Receive Date: 20120709
  Receipt Date: 20130724
  Transmission Date: 20140515
  Serious: Yes (Other)
  Sender: FDA-Public Use
  Company Number: PHEH2012US009227

PATIENT
  Age: 66 Year
  Sex: Male
  Weight: 122.4 kg

DRUGS (3)
  1. GLEEVEC (IMATINIB) [Suspect]
     Indication: GASTROINTESTINAL STROMAL TUMOUR
     Route: 048
     Dates: start: 20120306, end: 20120413
  2. PRAVASTATIN (PRAVASTATIN) (PRAVASTATIN) [Concomitant]
  3. PROTONIX (PANTOPRAZOLE) [Concomitant]

REACTIONS (3)
  - Neutropenia [None]
  - Leukopenia [None]
  - Fatigue [None]
